FAERS Safety Report 21281070 (Version 1)
Quarter: 2022Q3

REPORT INFORMATION
  Report Type: Spontaneous
  Country: US (occurrence: None)
  Receive Date: 20220831
  Receipt Date: 20220831
  Transmission Date: 20221027
  Serious: No
  Sender: FDA-Public Use
  Company Number: None

PATIENT
  Sex: Male

DRUGS (1)
  1. DUPIXENT [Suspect]
     Active Substance: DUPILUMAB
     Indication: Dermatitis atopic
     Dosage: 300 MG EVERY 4 WEEKS SUB-Q
     Route: 058
     Dates: start: 20220311

REACTIONS (3)
  - Device defective [None]
  - Device physical property issue [None]
  - Incorrect dose administered by device [None]
